FAERS Safety Report 5768113-X (Version None)
Quarter: 2008Q2

REPORT INFORMATION
  Report Type: 
  Country: None (occurrence: None)
  Receive Date: 20080612
  Receipt Date: 20080605
  Transmission Date: 20081010
  Serious: Yes (Hospitalization)
  Sender: FDA-Public Use
  Company Number: JP-ABBOTT-08P-087-0452780-00

PATIENT
  Sex: Female

DRUGS (4)
  1. KLARICID TABLET [Suspect]
     Indication: PNEUMONIA
     Route: 048
     Dates: start: 20080428
  2. L-CARBOCISTEINE [Concomitant]
     Indication: DRUG USE FOR UNKNOWN INDICATION
     Route: 048
     Dates: start: 20080428, end: 20080507
  3. LOXOPROFEN SODIUM HYDRATE [Concomitant]
     Indication: DRUG USE FOR UNKNOWN INDICATION
     Route: 048
     Dates: start: 20080428, end: 20080507
  4. REBAMIPIDE [Concomitant]
     Indication: DRUG USE FOR UNKNOWN INDICATION
     Route: 048
     Dates: start: 20080428, end: 20080507

REACTIONS (2)
  - PYREXIA [None]
  - URTICARIA [None]
